FAERS Safety Report 12889773 (Version 2)
Quarter: 2016Q4

REPORT INFORMATION
  Report Type: Spontaneous
  Country: US (occurrence: US)
  Receive Date: 20161027
  Receipt Date: 20161117
  Transmission Date: 20170207
  Serious: No
  Sender: FDA-Public Use
  Company Number: ALCN2016US007288

PATIENT
  Sex: Female
  Weight: 61.23 kg

DRUGS (2)
  1. SYSTANE (HYPROMELLOSE 2910 (4000 MPA.S)) [Suspect]
     Active Substance: HYPROMELLOSE 2910 (4000 MPA.S)
     Indication: LACRIMATION INCREASED
     Dosage: UNK UNK, QID
     Route: 047
  2. ERYTHROMYCIN. [Concomitant]
     Active Substance: ERYTHROMYCIN
     Indication: LACRIMATION INCREASED
     Route: 047

REACTIONS (1)
  - Drug ineffective [Unknown]
